FAERS Safety Report 10271985 (Version 2)
Quarter: 2014Q3

REPORT INFORMATION
  Report Type: Report from Study
  Country: CN (occurrence: CN)
  Receive Date: 20140702
  Receipt Date: 20140702
  Transmission Date: 20150326
  Serious: Yes (Disabling)
  Sender: FDA-Public Use
  Company Number: PHHO2008CN10042

PATIENT
  Age: 58 Year
  Sex: Female
  Weight: 67 kg

DRUGS (9)
  1. SOM230 [Suspect]
     Active Substance: PASIREOTIDE
     Dosage: UNK
     Route: 058
     Dates: start: 20080819, end: 20080821
  2. FELODIPINE. [Concomitant]
     Active Substance: FELODIPINE
  3. CALTRATE [Concomitant]
     Active Substance: CALCIUM CARBONATE
  4. ALENDRONIC ACID [Concomitant]
     Active Substance: ALENDRONIC ACID
  5. SOM230 [Suspect]
     Active Substance: PASIREOTIDE
     Dosage: UNK
     Route: 058
     Dates: start: 20080822
  6. SOM230 [Suspect]
     Active Substance: PASIREOTIDE
     Indication: ACROMEGALY
     Dosage: 900 UG, BID
     Route: 058
     Dates: start: 20080813, end: 20080818
  7. HUMULIN 70/30 [Concomitant]
     Active Substance: INSULIN HUMAN
  8. ACARBOSE. [Concomitant]
     Active Substance: ACARBOSE
  9. METOPROLOL [Concomitant]
     Active Substance: METOPROLOL

REACTIONS (3)
  - Dizziness [Recovered/Resolved]
  - Somnolence [Recovered/Resolved]
  - Dyslipidaemia [Not Recovered/Not Resolved]

NARRATIVE: CASE EVENT DATE: 20080813
